FAERS Safety Report 9701939 (Version 2)
Quarter: 2013Q4

REPORT INFORMATION
  Report Type: Spontaneous
  Country: US (occurrence: US)
  Receive Date: 20131121
  Receipt Date: 20131226
  Transmission Date: 20140711
  Serious: Yes (Other)
  Sender: FDA-Public Use
  Company Number: US-PFIZER INC-2013330803

PATIENT
  Age: 70 Year
  Sex: Female
  Weight: 56.69 kg

DRUGS (5)
  1. LYRICA [Suspect]
     Indication: PROCEDURAL PAIN
     Dosage: 150MG, EVERY THREE TO FOUR HOURS
     Route: 048
     Dates: start: 2010
  2. LYRICA [Suspect]
     Indication: MENISCUS INJURY
     Dosage: 150 MG, 2X/DAY
     Route: 048
  3. LYRICA [Suspect]
     Indication: PAIN
  4. PRAVASTATIN [Concomitant]
     Indication: BLOOD CHOLESTEROL INCREASED
     Dosage: UNK
  5. CITALOPRAM [Concomitant]
     Indication: SERUM SEROTONIN DECREASED
     Dosage: UNK

REACTIONS (9)
  - Off label use [Unknown]
  - Road traffic accident [Unknown]
  - Spinal disorder [Unknown]
  - Injury [Unknown]
  - Back disorder [Unknown]
  - Arthropathy [Unknown]
  - Hearing impaired [Unknown]
  - Nightmare [Unknown]
  - Body height decreased [Unknown]
